FAERS Safety Report 17929366 (Version 1)
Quarter: 2020Q2

REPORT INFORMATION
  Report Type: Spontaneous
  Country: CA (occurrence: CA)
  Receive Date: 20200623
  Receipt Date: 20200623
  Transmission Date: 20200714
  Serious: Yes (Death)
  Sender: FDA-Public Use
  Company Number: CA-ACCORD-186345

PATIENT
  Age: 54 Year
  Sex: Female

DRUGS (7)
  1. PROGRAF [Suspect]
     Active Substance: TACROLIMUS
     Indication: PROPHYLAXIS AGAINST TRANSPLANT REJECTION
     Dosage: 1 EVERY 1 DAYS
     Route: 042
  2. PREDNISONE. [Concomitant]
     Active Substance: PREDNISONE
  3. HYDRALAZINE [Concomitant]
     Active Substance: HYDRALAZINE HYDROCHLORIDE
  4. TERAZOSIN [Concomitant]
     Active Substance: TERAZOSIN HYDROCHLORIDE
  5. FUROSEMIDE. [Concomitant]
     Active Substance: FUROSEMIDE
  6. MYCOPHENOLIC ACID. [Suspect]
     Active Substance: MYCOPHENOLIC ACID
     Indication: PROPHYLAXIS AGAINST TRANSPLANT REJECTION
     Dosage: 1 EVERY 12 HOURS
     Route: 042
  7. INSULIN [Concomitant]
     Active Substance: INSULIN NOS

REACTIONS (8)
  - Pneumonia [Fatal]
  - Mechanical ventilation [Fatal]
  - Dyspnoea [Fatal]
  - Drug ineffective [Fatal]
  - Kidney transplant rejection [Fatal]
  - Gastrointestinal tube insertion [Fatal]
  - Dialysis [Fatal]
  - Haemodynamic instability [Fatal]
